FAERS Safety Report 5921357-6 (Version None)
Quarter: 2008Q4

REPORT INFORMATION
  Report Type: 
  Country: None (occurrence: None)
  Receive Date: 20081014
  Receipt Date: 20081002
  Transmission Date: 20090506
  Serious: Yes (Disabling)
  Sender: FDA-Public Use
  Company Number: 2008-1420

PATIENT
  Age: 22 Year
  Sex: Male

DRUGS (2)
  1. SOMATULINE DEPOT [Suspect]
     Indication: BODY HEIGHT ABOVE NORMAL
     Dosage: INTRAMUSCULAR
     Route: 030
     Dates: start: 19970101, end: 20000401
  2. TESTOSTERONE [Suspect]
     Indication: BODY HEIGHT ABOVE NORMAL
     Dosage: 100MG AND THEN 150MG INTRAVENOUS
     Route: 042
     Dates: start: 19981201, end: 20000401

REACTIONS (3)
  - ASTHENOSPERMIA [None]
  - AZOOSPERMIA [None]
  - TERATOSPERMIA [None]
